FAERS Safety Report 9925347 (Version 1)
Quarter: 2014Q1

REPORT INFORMATION
  Report Type: Spontaneous
  Country: US (occurrence: None)
  Receive Date: 20140224
  Receipt Date: 20140224
  Transmission Date: 20141002
  Serious: Yes (Death)
  Sender: FDA-Public Use
  Company Number: 2014US00114

PATIENT
  Age: 73 Year
  Sex: Female

DRUGS (6)
  1. GEMCITABINE [Suspect]
     Indication: CHOLANGIOCARCINOMA
  2. GEMCITABINE [Suspect]
     Indication: METASTASIS
  3. CAPECITABINE [Suspect]
     Indication: CHOLANGIOCARCINOMA
  4. CAPECITABINE [Suspect]
     Indication: METASTASIS
  5. BEVACIZUMAB [Suspect]
     Indication: CHOLANGIOCARCINOMA
  6. BEVACIZUMAB [Suspect]
     Indication: METASTASIS

REACTIONS (5)
  - Thrombotic microangiopathy [None]
  - Haemolytic uraemic syndrome [None]
  - Oedema peripheral [None]
  - Dyspnoea [None]
  - Haemodialysis [None]
